FAERS Safety Report 8552767-9 (Version None)
Quarter: 2012Q3

REPORT INFORMATION
  Report Type: 
  Country: None (occurrence: None)
  Receive Date: 20120731
  Receipt Date: 20120724
  Transmission Date: 20120928
  Serious: Yes (Other)
  Sender: FDA-Public Use
  Company Number: PHHY2010CA50815

PATIENT
  Sex: Male

DRUGS (3)
  1. SANDOSTATIN LAR [Suspect]
     Indication: CARCINOID TUMOUR
     Dosage: 20 MG, QMO
     Route: 030
     Dates: start: 20100727
  2. SANDOSTATIN LAR [Suspect]
     Dosage: 30 MG, ONCE IN EVERY 4 WEEKS
     Route: 030
  3. SANDOSTATIN LAR [Suspect]
     Dosage: 30 MG, QMO
     Route: 030

REACTIONS (6)
  - BONE MARROW DISORDER [None]
  - INJECTION SITE HAEMATOMA [None]
  - ANAEMIA [None]
  - BLOOD PRESSURE INCREASED [None]
  - PLATELET COUNT DECREASED [None]
  - INJECTION SITE HAEMORRHAGE [None]
